FAERS Safety Report 22209010 (Version 1)
Quarter: 2023Q2

REPORT INFORMATION
  Report Type: Spontaneous
  Country: US (occurrence: US)
  Receive Date: 20230413
  Receipt Date: 20230413
  Transmission Date: 20230722
  Serious: No
  Sender: FDA-Public Use
  Company Number: US-PFIZER INC-202300150220

PATIENT
  Age: 88 Year
  Sex: Female

DRUGS (2)
  1. VYNDAMAX [Suspect]
     Active Substance: TAFAMIDIS
     Dosage: 61 MG, 1X/DAY (61MG CAPSULE ONCE A DAY AT 7:30PM)
  2. ENTRESTO [Concomitant]
     Active Substance: SACUBITRIL\VALSARTAN
     Indication: Cardiac disorder
     Dosage: UNK, 2X/DAY (WAS ON 49-51MG OR SOMETHING AND DR. INCREASED TO 97-103/TAKES AT 10AM AND 10PM)
     Dates: start: 202106

REACTIONS (8)
  - Illness [Unknown]
  - Weight fluctuation [Unknown]
  - Malaise [Not Recovered/Not Resolved]
  - Dizziness [Not Recovered/Not Resolved]
  - Joint swelling [Not Recovered/Not Resolved]
  - Peripheral swelling [Unknown]
  - Oedema peripheral [Unknown]
  - Headache [Not Recovered/Not Resolved]
